FAERS Safety Report 11404261 (Version 4)
Quarter: 2016Q1

REPORT INFORMATION
  Report Type: Report from Study
  Country: DE (occurrence: DE)
  Receive Date: 20150821
  Receipt Date: 20160328
  Transmission Date: 20160525
  Serious: Yes (Hospitalization, Other)
  Sender: FDA-Public Use
  Company Number: DE-GILEAD-2015-0167430

PATIENT
  Age: 74 Year
  Sex: Female
  Weight: 70 kg

DRUGS (13)
  1. DEKRISTOL [Concomitant]
     Active Substance: CHOLECALCIFEROL
  2. RAMIPRIL. [Concomitant]
     Active Substance: RAMIPRIL
  3. MAGNESIUM [Concomitant]
     Active Substance: MAGNESIUM
  4. HUMATIN [Concomitant]
     Active Substance: PAROMOMYCIN SULFATE
     Dosage: UNK
     Dates: start: 20150702, end: 20150706
  5. ESTRADOT [Concomitant]
     Active Substance: ESTRADIOL
  6. PANTOPRAZOL [Concomitant]
     Active Substance: PANTOPRAZOLE SODIUM
  7. ASPIRIN                            /00002701/ [Concomitant]
     Active Substance: ASPIRIN
     Dosage: UNK
     Dates: end: 20150930
  8. LEDIPASVIR/SOFOSBUVIR [Suspect]
     Active Substance: LEDIPASVIR\SOFOSBUVIR
     Indication: CHRONIC HEPATITIS C
     Dosage: 90 MG, QD
     Route: 048
     Dates: start: 20150506, end: 20150630
  9. FERRO SANOL [Concomitant]
     Active Substance: FERROUS GLYCINE SULFATE
  10. KREON                              /00014701/ [Concomitant]
     Active Substance: PANCRELIPASE
  11. SPASMOLYT [Concomitant]
  12. VITAMIN B12 [Concomitant]
     Active Substance: CYANOCOBALAMIN
  13. BISOPROLOL [Concomitant]
     Active Substance: BISOPROLOL
     Dosage: UNK
     Dates: start: 20061101

REACTIONS (2)
  - Melaena [Recovered/Resolved]
  - Gastrointestinal haemorrhage [Recovered/Resolved]

NARRATIVE: CASE EVENT DATE: 20150629
